FAERS Safety Report 9778565 (Version 1)
Quarter: 2013Q4

REPORT INFORMATION
  Report Type: Spontaneous
  Country: GB (occurrence: GB)
  Receive Date: 20131223
  Receipt Date: 20131223
  Transmission Date: 20140711
  Serious: Yes (Hospitalization, Other)
  Sender: FDA-Public Use
  Company Number: GB-TEVA-451557ISR

PATIENT
  Age: 41 Year
  Sex: Male

DRUGS (2)
  1. VENLAFAXINE [Suspect]
     Indication: DEPRESSION
     Dosage: DOSE UNKNOWN - HOWEVER QUOTED AS ^HIGH DOSE^. PATIENT HAS BEEN TAKING FOR 6 MONTHS.
     Route: 048
     Dates: start: 20130606
  2. REBOXETINE [Suspect]
     Indication: DEPRESSION
     Route: 048
     Dates: start: 20130606, end: 20130906

REACTIONS (3)
  - Skin hypertrophy [Recovered/Resolved with Sequelae]
  - Skin fissures [Recovered/Resolved with Sequelae]
  - Skin exfoliation [Recovered/Resolved with Sequelae]
